FAERS Safety Report 6555816-2 (Version None)
Quarter: 2010Q1

REPORT INFORMATION
  Report Type: 
  Country: None (occurrence: None)
  Receive Date: 20100128
  Receipt Date: 20100119
  Transmission Date: 20100710
  Serious: Yes (Hospitalization, Other)
  Sender: FDA-Public Use
  Company Number: US-BAYER-200936490NA

PATIENT
  Age: 36 Year
  Sex: Female
  Weight: 55 kg

DRUGS (3)
  1. MIRENA [Suspect]
     Indication: CONTRACEPTION
     Route: 015
     Dates: start: 20070709, end: 20091013
  2. TEGRETOL [Concomitant]
     Indication: CONVULSION
     Dosage: 200MG AM, 400MG PM
     Route: 048
  3. FOLIC ACID [Concomitant]
     Indication: CONVULSION
     Route: 048

REACTIONS (3)
  - AMENORRHOEA [None]
  - ECTOPIC PREGNANCY WITH INTRAUTERINE DEVICE [None]
  - NAUSEA [None]
